FAERS Safety Report 9033973 (Version 1)
Quarter: 2013Q1

REPORT INFORMATION
  Report Type: Spontaneous
  Country: US (occurrence: US)
  Receive Date: 20130128
  Receipt Date: 20130128
  Transmission Date: 20140127
  Serious: Yes (Other)
  Sender: FDA-Public Use
  Company Number: US-AMGEN-USASP2012065427

PATIENT
  Age: 65 Year
  Sex: Male
  Weight: 56.69 kg

DRUGS (8)
  1. ENBREL [Suspect]
     Indication: RHEUMATOID ARTHRITIS
     Dosage: 1 ML (50 MG/ML), 2 TIMES/WK
     Route: 058
  2. METHOTREXATE [Concomitant]
     Dosage: 2.5 MG, UNK
  3. CODEINE SULFATE [Concomitant]
     Dosage: 15 MG, UNK
  4. FOLIC ACID [Concomitant]
     Dosage: 1 MG, UNK
  5. IBUPROFEN [Concomitant]
     Dosage: 200 MG, UNK
  6. MULTIPLE VITAMINS [Concomitant]
     Dosage: UNK
  7. HYDROXYZINE PAM [Concomitant]
     Dosage: 100 MG, UNK
  8. IRON [Concomitant]
     Dosage: 18 MG, UNK

REACTIONS (4)
  - Hip arthroplasty [Unknown]
  - Abdominal pain upper [Unknown]
  - Pyrexia [Unknown]
  - Local swelling [Unknown]
